FAERS Safety Report 8777035 (Version 2)
Quarter: 2012Q4

REPORT INFORMATION
  Report Type: 
  Country: US (occurrence: US)
  Receive Date: 20120911
  Receipt Date: 20121203
  Transmission Date: 20130627
  Serious: Yes (Other)
  Sender: FDA-Public Use
  Company Number: PHEH2012US017652

PATIENT
  Sex: Male

DRUGS (8)
  1. AREDIA [Suspect]
     Indication: MULTIPLE MYELOMA
     Dosage: 90 mg, QMO
     Route: 042
     Dates: start: 200202, end: 20031006
  2. ALLOPURINOL [Concomitant]
  3. CIPROFLOXACIN [Concomitant]
  4. FILGRASTIM [Concomitant]
  5. NYSTATIN [Concomitant]
  6. OXYCODONE [Concomitant]
  7. PROCHLORPERAZINE [Concomitant]
  8. PLAVIX [Concomitant]

REACTIONS (7)
  - Bronchial wall thickening [Unknown]
  - Intervertebral disc space narrowing [Unknown]
  - Dilatation ventricular [Unknown]
  - Mucosal inflammation [Unknown]
  - Periodontal disease [Unknown]
  - Gingivitis [Unknown]
  - Alopecia [Unknown]
